FAERS Safety Report 9189878 (Version 1)
Quarter: 2013Q1

REPORT INFORMATION
  Report Type: Spontaneous
  Country: CH (occurrence: CH)
  Receive Date: 20130326
  Receipt Date: 20130326
  Transmission Date: 20140127
  Serious: Yes (Hospitalization)
  Sender: FDA-Public Use
  Company Number: CH-PFIZER INC-2013092887

PATIENT
  Age: 62 Year
  Sex: Female

DRUGS (9)
  1. ALDACTONE [Suspect]
     Dosage: 50 MG, 3X/DAY
     Route: 048
     Dates: end: 20130101
  2. INDERAL [Suspect]
     Dosage: 10 MG, 2X/DAY
     Route: 048
     Dates: end: 20130101
  3. PROCORALAN [Suspect]
     Dosage: 7.5 MG, 2X/DAY
     Route: 048
     Dates: end: 20130101
  4. PLAVIX [Concomitant]
     Dosage: 75 MG, 1X/DAY
     Route: 048
  5. TOREM [Concomitant]
     Dosage: 5 MG, 1X/DAY
     Route: 048
  6. INEGY [Concomitant]
     Dosage: 10 MG, 1X/DAY
     Route: 048
  7. DEPAKIN CHRONO [Concomitant]
     Indication: GRAND MAL CONVULSION
     Dosage: 300 MG, 2X/DAY
     Route: 048
  8. PANTOZOL [Concomitant]
     Dosage: 40 MG, 1X/DAY
     Route: 048
  9. LANTUS [Concomitant]
     Dosage: 42 IU, 1X/DAY
     Route: 048

REACTIONS (4)
  - Hyperkalaemia [Recovered/Resolved]
  - Renal failure acute [Recovered/Resolved]
  - Bradycardia [Recovered/Resolved]
  - Hyperglycaemia [Recovering/Resolving]
